FAERS Safety Report 23124867 (Version 4)
Quarter: 2023Q4

REPORT INFORMATION
  Report Type: Report from Study
  Country: IT (occurrence: IT)
  Receive Date: 20231030
  Receipt Date: 20231121
  Transmission Date: 20240109
  Serious: Yes (Hospitalization)
  Sender: FDA-Public Use
  Company Number: IT-PFIZER INC-PV202300175487

PATIENT
  Age: 50 Year
  Sex: Female
  Weight: 48 kg

DRUGS (15)
  1. ENCORAFENIB [Suspect]
     Active Substance: ENCORAFENIB
     Indication: Colon cancer metastatic
     Dosage: 300 MG, 1X/DAY
     Route: 048
     Dates: start: 20231019, end: 20231021
  2. OXALIPLATIN [Suspect]
     Active Substance: OXALIPLATIN
     Indication: Colon cancer metastatic
     Dosage: 125 MG, CYCLIC (Q2W)
     Route: 042
     Dates: start: 20231019, end: 20231019
  3. FLUOROURACIL [Suspect]
     Active Substance: FLUOROURACIL
     Indication: Colon cancer metastatic
     Dosage: 580 MG, CYCLIC (Q2W)
     Route: 042
     Dates: start: 20231019, end: 20231019
  4. FLUOROURACIL [Suspect]
     Active Substance: FLUOROURACIL
     Dosage: 3500 MG, CYCLIC (Q2W)
     Route: 042
     Dates: start: 20231019, end: 20231021
  5. CETUXIMAB [Suspect]
     Active Substance: CETUXIMAB
     Indication: Colon cancer metastatic
     Dosage: 730 MG, CYCLIC (Q2W)
     Route: 042
     Dates: start: 20231019, end: 20231019
  6. LEUCOVORIN CALCIUM [Suspect]
     Active Substance: LEUCOVORIN CALCIUM
     Indication: Colon cancer metastatic
     Dosage: 580 MG, CYCLIC (Q2W)
     Route: 042
     Dates: start: 20231019, end: 20231019
  7. BISOPROLOL [Concomitant]
     Active Substance: BISOPROLOL\BISOPROLOL FUMARATE
     Indication: Cardiac failure
     Dosage: 1.25 MG
  8. LEVOTHYROXINE SODIUM [Concomitant]
     Active Substance: LEVOTHYROXINE SODIUM
     Indication: Hypothyroidism
     Dosage: 100 MCG, 1X/DAY
     Route: 048
     Dates: start: 2019
  9. LORAZEPAM [Concomitant]
     Active Substance: LORAZEPAM
     Indication: Prophylaxis
     Dosage: 3500 DROP
     Route: 048
  10. OXATOMIDE [Concomitant]
     Active Substance: OXATOMIDE
     Indication: Premedication
     Dosage: 30 MG, ONCE
     Route: 048
     Dates: start: 20231019, end: 20231019
  11. ESOMEPRAZOLE [Concomitant]
     Active Substance: ESOMEPRAZOLE
     Indication: Premedication
     Dosage: 40 MG, ONCE
     Route: 042
     Dates: start: 20231019, end: 20231019
  12. GRANISETRON [Concomitant]
     Active Substance: GRANISETRON
     Indication: Premedication
     Dosage: 3 MG, ONCE
     Route: 042
     Dates: start: 20231019, end: 20231019
  13. DEXAMETHASONE [Concomitant]
     Active Substance: DEXAMETHASONE
     Indication: Premedication
     Dosage: 12 MG, ONCE
     Route: 042
     Dates: start: 20231019, end: 20231019
  14. ACETAMINOPHEN [Concomitant]
     Active Substance: ACETAMINOPHEN
     Indication: Pyrexia
     Dosage: 1000 MG, 2X/DAY
     Route: 048
     Dates: start: 20231020, end: 20231020
  15. METOCLOPRAMIDE [Concomitant]
     Active Substance: METOCLOPRAMIDE
     Indication: Nausea
     Dosage: 1 TABLET, 2X/DAY
     Route: 048
     Dates: start: 20231022, end: 20231023

REACTIONS (3)
  - Transaminases increased [Recovered/Resolved with Sequelae]
  - Pain [Recovered/Resolved]
  - Pyrexia [Recovered/Resolved]

NARRATIVE: CASE EVENT DATE: 20231020
